FAERS Safety Report 6998665-3 (Version None)
Quarter: 2010Q3

REPORT INFORMATION
  Report Type: 
  Country: None (occurrence: None)
  Receive Date: 20100920
  Receipt Date: 20100326
  Transmission Date: 20110219
  Serious: No
  Sender: FDA-Public Use
  Company Number: US-ASTRAZENECA-2010SE13671

PATIENT
  Age: 453 Month
  Sex: Female

DRUGS (7)
  1. SEROQUEL XR [Suspect]
     Indication: SLEEP DISORDER
     Route: 048
     Dates: start: 20100301
  2. TRILEPTAL [Concomitant]
  3. CIPRO [Concomitant]
  4. TRAZODONE HCL [Concomitant]
  5. COGENTIN [Concomitant]
  6. REMERON [Concomitant]
  7. LYRICA [Concomitant]

REACTIONS (4)
  - ANXIETY [None]
  - FATIGUE [None]
  - OEDEMA PERIPHERAL [None]
  - SOMNOLENCE [None]
